FAERS Safety Report 4459296-2 (Version None)
Quarter: 2004Q3

REPORT INFORMATION
  Report Type: 
  Country: None (occurrence: None)
  Receive Date: 20040924
  Receipt Date: 20040915
  Transmission Date: 20050211
  Serious: Yes (Hospitalization)
  Sender: FDA-Public Use
  Company Number: 2004066713

PATIENT
  Sex: Female

DRUGS (1)
  1. UNISOM SLEEPGELS (DIPHENHYDRAMINE) [Suspect]
     Dosage: 1-12 TABLETS, ORAL
     Route: 048
     Dates: start: 20020101

REACTIONS (3)
  - DIZZINESS [None]
  - HALLUCINATION [None]
  - INTENTIONAL OVERDOSE [None]
